FAERS Safety Report 12928755 (Version 9)
Quarter: 2017Q4

REPORT INFORMATION
  Report Type: Report from Study
  Country: BR (occurrence: BR)
  Receive Date: 20161110
  Receipt Date: 20171214
  Transmission Date: 20180320
  Serious: Yes (Life-Threatening, Hospitalization, Other)
  Sender: FDA-Public Use
  Company Number: BR-ROCHE-1839122

PATIENT
  Age: 42 Year
  Sex: Female
  Weight: 65 kg

DRUGS (18)
  1. DIPYRONE [Concomitant]
     Active Substance: DIPYRONE
     Indication: ABDOMINAL PAIN
     Route: 065
     Dates: start: 20160923, end: 20160925
  2. METOCLOPRAMIDE. [Concomitant]
     Active Substance: METOCLOPRAMIDE
     Route: 065
     Dates: start: 20160929, end: 20161002
  3. DIPYRONE [Concomitant]
     Active Substance: DIPYRONE
     Indication: PYREXIA
     Route: 065
     Dates: start: 20161010, end: 20161010
  4. DIMETHICONE. [Concomitant]
     Active Substance: DIMETHICONE
     Indication: ABDOMINAL DISTENSION
     Route: 065
     Dates: start: 20160926, end: 20160930
  5. DIPYRONE [Concomitant]
     Active Substance: DIPYRONE
     Indication: ABDOMINAL PAIN
     Route: 065
     Dates: start: 20161003, end: 20161004
  6. NORFLOXACIN [Concomitant]
     Active Substance: NORFLOXACIN
     Indication: POLYURIA
     Route: 065
     Dates: start: 20161123, end: 20161130
  7. NIMESULIDE [Concomitant]
     Active Substance: NIMESULIDE
     Indication: POLYURIA
     Route: 065
     Dates: start: 20161123, end: 20161123
  8. VANCOMYCIN [Suspect]
     Active Substance: VANCOMYCIN
     Indication: PERITONITIS
     Route: 065
     Dates: start: 20161010, end: 20161101
  9. HYDROXYZINE [Concomitant]
     Active Substance: HYDROXYZINE HYDROCHLORIDE
     Indication: RASH
     Route: 065
     Dates: start: 20160925, end: 20160925
  10. LOPERAMIDE [Concomitant]
     Active Substance: LOPERAMIDE
     Indication: DIARRHOEA
     Route: 065
     Dates: start: 20161104, end: 20170302
  11. PACLITAXEL. [Suspect]
     Active Substance: PACLITAXEL
     Indication: CERVIX CANCER METASTATIC
     Route: 042
     Dates: start: 20160919
  12. POTASSIUM CHLORIDE. [Concomitant]
     Active Substance: POTASSIUM CHLORIDE
     Indication: HYPOKALAEMIA
     Route: 065
     Dates: start: 20161102, end: 20161104
  13. ONDANSETRON [Concomitant]
     Active Substance: ONDANSETRON
     Indication: VOMITING
     Route: 065
     Dates: start: 20161007, end: 20161007
  14. FERROUS SULFATE. [Concomitant]
     Active Substance: FERROUS SULFATE
     Indication: ANAEMIA
     Route: 065
     Dates: start: 20161126, end: 20170510
  15. BEVACIZUMAB. [Suspect]
     Active Substance: BEVACIZUMAB
     Indication: CERVIX CANCER METASTATIC
     Route: 042
     Dates: start: 20160919
  16. CARBOPLATIN. [Suspect]
     Active Substance: CARBOPLATIN
     Indication: CERVIX CANCER METASTATIC
     Route: 042
     Dates: start: 20160919
  17. METOCLOPRAMIDE. [Concomitant]
     Active Substance: METOCLOPRAMIDE
     Indication: VOMITING
     Route: 065
     Dates: start: 20160924, end: 20160925
  18. METOCLOPRAMIDE. [Concomitant]
     Active Substance: METOCLOPRAMIDE
     Indication: INTESTINAL OBSTRUCTION
     Route: 065
     Dates: start: 20161004, end: 20161010

REACTIONS (5)
  - Anuria [Recovered/Resolved]
  - Peritonitis [Recovered/Resolved]
  - Haematuria [Recovered/Resolved]
  - Intestinal obstruction [Recovered/Resolved]
  - Urticaria [Recovered/Resolved]

NARRATIVE: CASE EVENT DATE: 20160924
